FAERS Safety Report 8246304-6 (Version None)
Quarter: 2012Q1

REPORT INFORMATION
  Report Type: 
  Country: None (occurrence: None)
  Receive Date: 20120329
  Receipt Date: 20120329
  Transmission Date: 20120608
  Serious: Yes (Other)
  Sender: FDA-Public Use
  Company Number: None

PATIENT
  Sex: Female

DRUGS (9)
  1. GILENYA [Suspect]
     Indication: MULTIPLE SCLEROSIS
     Dosage: 0.5MG QD PO
     Route: 048
     Dates: start: 20111116, end: 20120214
  2. WELLBUTRIN [Concomitant]
  3. PROVIGIL [Concomitant]
  4. SANCTURA [Concomitant]
  5. REMERON [Concomitant]
  6. PERCOCET [Concomitant]
  7. TRAMADOL HCL [Concomitant]
  8. NALTREXONE HYDROCHLORIDE [Concomitant]
  9. BACLOFEN [Concomitant]

REACTIONS (1)
  - CHEST PAIN [None]
